FAERS Safety Report 13637225 (Version 1)
Quarter: 2017Q2

REPORT INFORMATION
  Report Type: Spontaneous
  Country: AR (occurrence: AR)
  Receive Date: 20170609
  Receipt Date: 20170609
  Transmission Date: 20170830
  Serious: Yes (Death, Other)
  Sender: FDA-Public Use
  Company Number: AR-BAYER-2017-103468

PATIENT
  Age: 72 Year
  Sex: Female

DRUGS (2)
  1. VALSARTAN. [Concomitant]
     Active Substance: VALSARTAN
  2. REGORAFENIB [Suspect]
     Active Substance: REGORAFENIB
     Indication: ADENOCARCINOMA OF COLON
     Dosage: UNK
     Dates: start: 201502, end: 201508

REACTIONS (8)
  - Intestinal obstruction [None]
  - Asthenia [None]
  - Metastasis [None]
  - Rash [None]
  - Tumour necrosis [None]
  - Death [Fatal]
  - Metastases to lung [None]
  - General physical health deterioration [None]

NARRATIVE: CASE EVENT DATE: 201505
